FAERS Safety Report 17153456 (Version 2)
Quarter: 2019Q4

REPORT INFORMATION
  Report Type: Spontaneous
  Country: US (occurrence: US)
  Receive Date: 20191213
  Receipt Date: 20191226
  Transmission Date: 20200122
  Serious: No
  Sender: FDA-Public Use
  Company Number: US-IGSA-SR10009544

PATIENT
  Sex: Female
  Weight: 76 kg

DRUGS (26)
  1. GAMUNEX-C [Suspect]
     Active Substance: HUMAN IMMUNOGLOBULIN G
     Indication: HYPOGAMMAGLOBULINAEMIA
     Dosage: 30 G, Q.4WK.
     Route: 042
     Dates: start: 20191030
  2. SODIUM CHLORIDE. [Concomitant]
     Active Substance: SODIUM CHLORIDE
  3. MULTIVITAMINS [Concomitant]
     Active Substance: VITAMINS
  4. BENADRYL [Concomitant]
     Active Substance: DIPHENHYDRAMINE HYDROCHLORIDE
     Indication: PREMEDICATION
     Dosage: 25 MG, UNK
     Route: 048
     Dates: start: 20191030
  5. VITAMIN D2 [Concomitant]
     Active Substance: ERGOCALCIFEROL
  6. GAMUNEX-C [Suspect]
     Active Substance: HUMAN IMMUNOGLOBULIN G
     Dosage: 30 G, Q.4WK.
     Route: 042
     Dates: start: 20180112
  7. ACETAMINOPHEN. [Concomitant]
     Active Substance: ACETAMINOPHEN
     Indication: PREMEDICATION
     Dosage: 650 MG, UNK
     Route: 048
     Dates: start: 20191030
  8. HEPARIN [Concomitant]
     Active Substance: HEPARIN SODIUM
  9. RESTASIS [Concomitant]
     Active Substance: CYCLOSPORINE
  10. VITAMIN C [Concomitant]
     Active Substance: ASCORBIC ACID
  11. COLESTID [Concomitant]
     Active Substance: COLESTIPOL HYDROCHLORIDE
  12. EPINEPHRINE                        /00003902/ [Concomitant]
     Active Substance: EPINEPHRINE HYDROCHLORIDE
  13. CLARITIN [Concomitant]
     Active Substance: LORATADINE
  14. ALBUTEROL SULFATE. [Concomitant]
     Active Substance: ALBUTEROL SULFATE
  15. ATENOLOL. [Concomitant]
     Active Substance: ATENOLOL
  16. LIDOCAINE                          /00033402/ [Concomitant]
     Active Substance: LIDOCAINE
  17. FLONASE                            /00908302/ [Concomitant]
     Active Substance: MOMETASONE FUROATE
  18. COMBIVENT [Concomitant]
     Active Substance: ALBUTEROL SULFATE\IPRATROPIUM BROMIDE
  19. VITAMIN B [Concomitant]
     Active Substance: VITAMIN B
  20. MONTELUKAST                        /01362602/ [Concomitant]
     Active Substance: MONTELUKAST SODIUM
  21. SYNTHROID [Concomitant]
     Active Substance: LEVOTHYROXINE SODIUM
  22. VITAMIN D3 [Concomitant]
     Active Substance: CHOLECALCIFEROL
  23. CALCIUM                            /00060701/ [Concomitant]
     Active Substance: CALCIUM
  24. PREVIDENT [Concomitant]
     Active Substance: SODIUM FLUORIDE
  25. MACROBID [Concomitant]
     Active Substance: NITROFURANTOIN\NITROFURANTOIN MONOHYDRATE
  26. ESTRADIOL                          /00045402/ [Concomitant]

REACTIONS (4)
  - Pruritus [Recovered/Resolved]
  - Urticaria [Recovering/Resolving]
  - Burning sensation [Recovering/Resolving]
  - Erythema [Unknown]

NARRATIVE: CASE EVENT DATE: 20191030
